FAERS Safety Report 5716733-0 (Version None)
Quarter: 2008Q2

REPORT INFORMATION
  Report Type: 
  Country: None (occurrence: None)
  Receive Date: 20080424
  Receipt Date: 20070523
  Transmission Date: 20081010
  Serious: No
  Sender: FDA-Public Use
  Company Number: US-BAYER-200711370BWH

PATIENT
  Sex: Male

DRUGS (4)
  1. LEVITRA [Suspect]
     Indication: ERECTILE DYSFUNCTION
     Route: 048
  2. UNKNOWN MEDICATIONS FOR BLOOD PRESSURE [Concomitant]
  3. UNKNOWN MEDICATIONS FOR DIABETES [Concomitant]
  4. UNKNOWN MEDICATIONS FOR DEPRESSION [Concomitant]

REACTIONS (1)
  - DRUG ABUSER [None]
